FAERS Safety Report 14210792 (Version 1)
Quarter: 2017Q4

REPORT INFORMATION
  Report Type: Spontaneous
  Country: US (occurrence: US)
  Receive Date: 20171121
  Receipt Date: 20171121
  Transmission Date: 20180321
  Serious: No
  Sender: FDA-Public Use
  Company Number: US-BAUSCH-BL-2017-002214

PATIENT
  Age: 66 Year
  Sex: Female
  Weight: 95.34 kg

DRUGS (5)
  1. FUROSEMIDE. [Concomitant]
     Active Substance: FUROSEMIDE
     Indication: ABDOMINAL DISTENSION
     Dosage: ONE TABLET ONCE WEEKLY IF NEEDED
     Route: 048
     Dates: start: 20161205
  2. FUROSEMIDE. [Concomitant]
     Active Substance: FUROSEMIDE
     Indication: SWELLING
  3. AMLODIPINE [Concomitant]
     Active Substance: AMLODIPINE BESYLATE
     Indication: HYPERTENSION
     Dosage: ONE TABLET AT 4 PM
     Route: 048
     Dates: start: 20161205
  4. VALSARTAN. [Concomitant]
     Active Substance: VALSARTAN
     Indication: HYPERTENSION
     Dosage: ONE TABLET AT 8 AM
     Route: 048
     Dates: start: 20161205
  5. LOTEMAX [Suspect]
     Active Substance: LOTEPREDNOL ETABONATE
     Indication: PRURITUS
     Dosage: ONE DROP IN EACH EYE FOUR TIMES DAILY
     Route: 047
     Dates: start: 20170106, end: 20170120

REACTIONS (2)
  - Disease recurrence [Not Recovered/Not Resolved]
  - Visual impairment [Not Recovered/Not Resolved]

NARRATIVE: CASE EVENT DATE: 20170120
